FAERS Safety Report 10119655 (Version 2)
Quarter: 2014Q2

REPORT INFORMATION
  Report Type: Spontaneous
  Country: US (occurrence: US)
  Receive Date: 20140425
  Receipt Date: 20140509
  Transmission Date: 20141212
  Serious: No
  Sender: FDA-Public Use
  Company Number: US-PFIZER INC-2014113626

PATIENT
  Age: 72 Year
  Sex: Male

DRUGS (4)
  1. CELEBREX [Suspect]
     Dosage: 200 MG, DAILY (1 DAY)
  2. ASA [Concomitant]
     Dosage: 81 MG, UNK
  3. HYZAAR [Concomitant]
     Dosage: UNK
  4. SIMVASTATIN [Concomitant]
     Dosage: UNK

REACTIONS (1)
  - Drug hypersensitivity [Unknown]
